FAERS Safety Report 7722034-1 (Version None)
Quarter: 2011Q3

REPORT INFORMATION
  Report Type: 
  Country: None (occurrence: None)
  Receive Date: 20110825
  Receipt Date: 20110815
  Transmission Date: 20111222
  Serious: Yes (Hospitalization)
  Sender: FDA-Public Use
  Company Number: 15928674

PATIENT
  Age: 86 Year
  Sex: Female

DRUGS (8)
  1. LORATADINE [Concomitant]
  2. DIAZEPAM [Concomitant]
  3. PLACEBO [Suspect]
     Indication: EMBOLISM
     Dates: start: 20110701
  4. ENOXAPARIN SODIUM [Suspect]
     Indication: EMBOLISM
  5. APIXABAN [Suspect]
     Indication: EMBOLISM
     Dosage: 5 MILLIGRAM 1 DAY, ORAL
     Route: 048
     Dates: start: 20110721
  6. VERAPAMIL (VERAPAMIL HCL) [Concomitant]
  7. CAPTOPRIL [Concomitant]
  8. WARFARIN SODIUM [Suspect]
     Indication: EMBOLISM
     Dosage: 6 MILLIGRAM, 1 DAY, ORAL
     Route: 048
     Dates: start: 20110714

REACTIONS (1)
  - BRONCHOPNEUMONIA [None]
